FAERS Safety Report 17108259 (Version 2)
Quarter: 2020Q2

REPORT INFORMATION
  Report Type: Spontaneous
  Country: US (occurrence: US)
  Receive Date: 20191204
  Receipt Date: 20200528
  Transmission Date: 20200713
  Serious: No
  Sender: FDA-Public Use
  Company Number: US-UCBSA-2017040500

PATIENT
  Sex: Female

DRUGS (1)
  1. CIMZIA [Suspect]
     Active Substance: CERTOLIZUMAB PEGOL
     Indication: PRODUCT USED FOR UNKNOWN INDICATION
     Dosage: SYRINGE KIT 2X200 MG/ML

REACTIONS (5)
  - Nausea [Recovered/Resolved]
  - Therapeutic product effect decreased [Unknown]
  - Diarrhoea [Unknown]
  - Muscle spasms [Unknown]
  - Nasopharyngitis [Unknown]
